FAERS Safety Report 5163824-1 (Version None)
Quarter: 2006Q4

REPORT INFORMATION
  Report Type: 
  Country: None (occurrence: None)
  Receive Date: 20061128
  Receipt Date: 20061128
  Transmission Date: 20070319
  Serious: Yes (Disabling, Other)
  Sender: FDA-Public Use
  Company Number: None

PATIENT
  Age: 68 Year
  Sex: Female
  Weight: 105 kg

DRUGS (1)
  1. LEVOTHYROXINE SODIUM [Suspect]
     Indication: HYPOTHYROIDISM
     Dosage: ONE TABLET DAILY PO
     Route: 048
     Dates: start: 20061023, end: 20061118

REACTIONS (3)
  - DIARRHOEA [None]
  - PALPITATIONS [None]
  - PHARMACEUTICAL PRODUCT COMPLAINT [None]
